FAERS Safety Report 5474960-4 (Version None)
Quarter: 2007Q4

REPORT INFORMATION
  Report Type: 
  Country: None (occurrence: None)
  Receive Date: 20071002
  Receipt Date: 20070921
  Transmission Date: 20080405
  Serious: Yes (Other)
  Sender: FDA-Public Use
  Company Number: US-ROCHE-512242

PATIENT
  Age: 61 Year
  Sex: Female

DRUGS (3)
  1. PEGASYS [Suspect]
     Indication: HEPATITIS C
     Dosage: FORM: PRE-FILLED SYRINGE, INDICATION: HEPATITIS C (GENOTYPE 4)
     Route: 065
     Dates: start: 20070605
  2. COPEGUS [Suspect]
     Indication: HEPATITIS C
     Dosage: INDICATION: HEPATITIS C (GENOTYPE 4)
     Route: 065
     Dates: start: 20070605
  3. HERBS AND VITAMINS [Concomitant]

REACTIONS (10)
  - ANGER [None]
  - BLADDER DISTENSION [None]
  - BLOOD IRON DECREASED [None]
  - HEPATIC CIRRHOSIS [None]
  - IRRITABILITY [None]
  - MUSCLE SPASMS [None]
  - NERVOUSNESS [None]
  - PLATELET COUNT DECREASED [None]
  - THROMBOSIS [None]
  - WHITE BLOOD CELL COUNT DECREASED [None]
